FAERS Safety Report 5142948-9 (Version None)
Quarter: 2006Q4

REPORT INFORMATION
  Report Type: 
  Country: None (occurrence: None)
  Receive Date: 20061030
  Receipt Date: 20061017
  Transmission Date: 20070319
  Serious: Yes (Hospitalization)
  Sender: FDA-Public Use
  Company Number: 2006-149293-NL

PATIENT
  Age: 68 Year
  Sex: Female

DRUGS (4)
  1. DANAPAROID SODIUM [Suspect]
     Indication: HEPARIN-INDUCED THROMBOCYTOPENIA
     Dosage: 2500 ANTI-XA ONCE
     Route: 040
  2. DANAPAROID SODIUM [Suspect]
     Indication: VENOUS THROMBOSIS LIMB
     Dosage: 2500 ANTI-XA ONCE
     Route: 040
  3. DANAPAROID SODIUM [Suspect]
     Indication: HEPARIN-INDUCED THROMBOCYTOPENIA
     Dosage: 400 ANTI_XA A1HR/300 ANIT_XA Q1HR/150 ANTI_XA Q1HR
     Route: 042
  4. HEPARIN [Concomitant]

REACTIONS (2)
  - ARM AMPUTATION [None]
  - INFARCTION [None]
